FAERS Safety Report 8192774-1 (Version None)
Quarter: 2012Q1

REPORT INFORMATION
  Report Type: 
  Country: None (occurrence: None)
  Receive Date: 20120308
  Receipt Date: 20120305
  Transmission Date: 20120608
  Serious: No
  Sender: FDA-Public Use
  Company Number: US-PFIZER INC-2012058099

PATIENT
  Sex: Male

DRUGS (2)
  1. VIAGRA [Suspect]
     Dosage: UNK
     Route: 048
  2. VIAGRA [Suspect]
     Dosage: 100 MG, UNK
     Route: 048

REACTIONS (2)
  - PAINFUL ERECTION [None]
  - ERECTILE DYSFUNCTION [None]
